FAERS Safety Report 7722986-X (Version None)
Quarter: 2011Q3

REPORT INFORMATION
  Report Type: 
  Country: None (occurrence: None)
  Receive Date: 20110901
  Receipt Date: 20110823
  Transmission Date: 20111222
  Serious: Yes (Other)
  Sender: FDA-Public Use
  Company Number: IE-JNJFOC-20110404390

PATIENT
  Sex: Female

DRUGS (4)
  1. LEXAPRO [Concomitant]
     Indication: DEPRESSION
     Route: 065
     Dates: start: 20100604
  2. RISPERDAL [Suspect]
     Indication: PRODUCT USED FOR UNKNOWN INDICATION
     Route: 048
     Dates: start: 20110208, end: 20110210
  3. YASMIN [Concomitant]
     Indication: CONTRACEPTION
     Route: 065
  4. CLONAZEPAM [Concomitant]
     Route: 065
     Dates: start: 20100604

REACTIONS (3)
  - MEDICATION ERROR [None]
  - DIZZINESS [None]
  - PSYCHOTIC DISORDER [None]
